APPROVED DRUG PRODUCT: PAMIDRONATE DISODIUM
Active Ingredient: PAMIDRONATE DISODIUM
Strength: 90MG/VIAL
Dosage Form/Route: INJECTABLE;INJECTION
Application: A075290 | Product #003 | TE Code: AP
Applicant: HIKMA PHARMACEUTICALS USA INC
Approved: Apr 30, 2001 | RLD: No | RS: No | Type: RX